FAERS Safety Report 6291013-6 (Version None)
Quarter: 2009Q3

REPORT INFORMATION
  Report Type: 
  Country: None (occurrence: None)
  Receive Date: 20090730
  Receipt Date: 20090720
  Transmission Date: 20100115
  Serious: Yes (Other)
  Sender: FDA-Public Use
  Company Number: US-JNJCH-2009019696

PATIENT
  Age: 40 Year
  Sex: Female
  Weight: 63.5 kg

DRUGS (6)
  1. VISINE TOTALITY MULTI-SYMPTOM RELIEF [Suspect]
     Indication: OCULAR HYPERAEMIA
     Dosage: TEXT:UNSPECIFIED
     Route: 047
     Dates: start: 20090702, end: 20090713
  2. VISINE TOTALITY MULTI-SYMPTOM RELIEF [Suspect]
     Indication: DRY EYE
  3. VISINE TOTALITY MULTI-SYMPTOM RELIEF [Suspect]
     Indication: EYE IRRITATION
  4. LISINOPRIL [Concomitant]
     Indication: HYPERTENSION
     Dosage: TEXT:40MG ONCE A DAY
     Route: 048
  5. PREDNISONE [Concomitant]
     Indication: ARTHRITIS
     Dosage: TEXT:5MG ONCE A DAY
     Route: 048
  6. ORENCIA [Concomitant]
     Indication: ARTHRITIS
     Dosage: TEXT:UNSPECIFIED ONCE A MONTH
     Route: 042

REACTIONS (2)
  - EYE IRRITATION [None]
  - VISION BLURRED [None]
